FAERS Safety Report 8573996-4 (Version None)
Quarter: 2012Q2

REPORT INFORMATION
  Report Type: 
  Country: None (occurrence: None)
  Receive Date: 20120423
  Receipt Date: 20100129
  Transmission Date: 20120825
  Serious: Yes (Other)
  Sender: FDA-Public Use
  Company Number: PHEH2009US16180

PATIENT
  Sex: Male

DRUGS (2)
  1. EXJADE [Suspect]
     Indication: SERUM FERRITIN INCREASED
     Dosage: 1250 MG/DAY, ORAL
     Route: 048
     Dates: start: 20090625, end: 20091108
  2. EXJADE [Suspect]
     Indication: HEREDITARY HAEMOCHROMATOSIS
     Dosage: 1250 MG/DAY, ORAL
     Route: 048
     Dates: start: 20090625, end: 20091108

REACTIONS (2)
  - SERUM FERRITIN INCREASED [None]
  - PHLEBOTOMY [None]
